FAERS Safety Report 24916678 (Version 2)
Quarter: 2025Q2

REPORT INFORMATION
  Report Type: Report from Study
  Country: CA (occurrence: CA)
  Receive Date: 20250203
  Receipt Date: 20250514
  Transmission Date: 20250716
  Serious: Yes (Hospitalization)
  Sender: TAKEDA
  Company Number: CA-TAKEDA-2025TUS010728

PATIENT
  Sex: Male

DRUGS (15)
  1. VEDOLIZUMAB [Suspect]
     Active Substance: VEDOLIZUMAB
     Indication: Colitis ulcerative
  2. VEDOLIZUMAB [Suspect]
     Active Substance: VEDOLIZUMAB
  3. METOPROLOL [Concomitant]
     Active Substance: METOPROLOL
  4. AMIODARONE [Concomitant]
     Active Substance: AMIODARONE
  5. ALLOPURINOL [Concomitant]
     Active Substance: ALLOPURINOL
  6. OZEMPIC [Concomitant]
     Active Substance: SEMAGLUTIDE
  7. CRESTOR [Concomitant]
     Active Substance: ROSUVASTATIN CALCIUM
  8. PANTOPRAZOLE [Concomitant]
     Active Substance: PANTOPRAZOLE
  9. GLICLAZIDE [Concomitant]
     Active Substance: GLICLAZIDE
  10. PLAVIX [Concomitant]
     Active Substance: CLOPIDOGREL BISULFATE
  11. EZETIMIBE [Concomitant]
     Active Substance: EZETIMIBE
  12. ASPIRIN [Concomitant]
     Active Substance: ASPIRIN
  13. VITAMIN C [Concomitant]
     Active Substance: ASCORBIC ACID
  14. VITAMIN D [Concomitant]
     Active Substance: VITAMIN D NOS
  15. CANDESARTAN [Concomitant]
     Active Substance: CANDESARTAN

REACTIONS (4)
  - Fall [Recovering/Resolving]
  - Nerve compression [Unknown]
  - Post procedural complication [Unknown]
  - Arthralgia [Recovering/Resolving]
